FAERS Safety Report 5677034-2 (Version None)
Quarter: 2008Q1

REPORT INFORMATION
  Report Type: 
  Country: None (occurrence: None)
  Receive Date: 20080324
  Receipt Date: 20080317
  Transmission Date: 20080703
  Serious: Yes (Other)
  Sender: FDA-Public Use
  Company Number: DE-AVENTIS-200712054DE

PATIENT
  Age: 41 Year
  Sex: Female

DRUGS (3)
  1. CLEXANE [Suspect]
     Dosage: DOSE: NOT REPORTED
  2. ALL OTHER THERAPEUTIC PRODUCTS [Concomitant]
     Indication: PREGNANCY
     Dosage: DOSE: 1X1/DAY
     Route: 048
  3. PCM [Concomitant]
     Indication: MIGRAINE
     Dosage: DOSE: NOT REPORTED

REACTIONS (5)
  - CAESAREAN SECTION [None]
  - DRUG EXPOSURE DURING PREGNANCY [None]
  - FOETAL DISORDER [None]
  - PLACENTAL INSUFFICIENCY [None]
  - PRE-ECLAMPSIA [None]
